FAERS Safety Report 15596722 (Version 3)
Quarter: 2019Q2

REPORT INFORMATION
  Report Type: Spontaneous
  Country: US (occurrence: US)
  Receive Date: 20181108
  Receipt Date: 20190426
  Transmission Date: 20190711
  Serious: No
  Sender: FDA-Public Use
  Company Number: PHEH2018US046784

PATIENT
  Sex: Male

DRUGS (2)
  1. TELOTRISTAT ETHYL [Suspect]
     Active Substance: TELOTRISTAT ETHYL
     Indication: CARCINOID TUMOUR OF THE SMALL BOWEL
     Dosage: 250 MG, TID
     Route: 048
  2. AFINITOR [Suspect]
     Active Substance: EVEROLIMUS
     Indication: CARCINOID TUMOUR OF THE SMALL BOWEL
     Dosage: 10 MG, QD
     Route: 048

REACTIONS (7)
  - Diarrhoea [Unknown]
  - Abdominal pain upper [Unknown]
  - Flushing [Unknown]
  - Lip swelling [Unknown]
  - Stomatitis [Unknown]
  - Hypersensitivity [Unknown]
  - Abdominal pain [Unknown]
